FAERS Safety Report 18041936 (Version 1)
Quarter: 2020Q3

REPORT INFORMATION
  Report Type: Spontaneous
  Country: US (occurrence: US)
  Receive Date: 20200720
  Receipt Date: 20200720
  Transmission Date: 20201103
  Serious: No
  Sender: FDA-Public Use
  Company Number: US-CIPLA LTD.-2020US04528

PATIENT

DRUGS (7)
  1. EMTRICITABINE/TENOFOVIR [Suspect]
     Active Substance: EMTRICITABINE\TENOFOVIR
     Indication: ANTIRETROVIRAL THERAPY
     Dosage: 1 (UNITS UNSPECIFIED), 1 COURSE DURING FIRST TRIMESTER FROM 11 WEEKS
     Route: 048
  2. ATAZANAVIR. [Suspect]
     Active Substance: ATAZANAVIR
     Indication: ANTIRETROVIRAL THERAPY
     Dosage: 300 (UNITS UNSPECIFIED), 1 COURSE, DURING FIRST TRIMESTER FROM 11 WEEKS TO 29 WEEKS
     Route: 048
  3. ZIDOVUDINE. [Suspect]
     Active Substance: ZIDOVUDINE
     Dosage: 1 (UNITS UNSPECIFIED), 2 COURSE, DURING THIRD TRIMESTER FROM 39 TO 40 WEEKS
     Route: 042
  4. COBICISTAT;ELVITEGRAVIR;EMTRICITABINE;TENOFOVIR ALAFENAMIDE [Suspect]
     Active Substance: COBICISTAT\ELVITEGRAVIR\EMTRICITABINE\TENOFOVIR ALAFENAMIDE FUMARATE
     Indication: ANTIRETROVIRAL THERAPY
     Dosage: 1 (UNITS UNSPECIFIED), 1 COURSE DURING FIRST TRIMESTER FOR 11 WEEKS OF GESTATION
     Route: 048
  5. ATAZANAVIR. [Suspect]
     Active Substance: ATAZANAVIR
     Dosage: 400 (UNITS UNSPECIFIED), SECOND COURSE, DURING THIRD TRIMESTER FROM 29 WEEKS
     Route: 048
  6. RITONAVIR. [Suspect]
     Active Substance: RITONAVIR
     Indication: ANTIRETROVIRAL THERAPY
     Dosage: 1 (UNITS UNSPECIFIED), FIRST COURSE, FROM FIRST TRIMESTER FROM 11 WEEKS OF GESTATION
     Route: 048
  7. ZIDOVUDINE. [Suspect]
     Active Substance: ZIDOVUDINE
     Indication: ANTIRETROVIRAL THERAPY
     Dosage: 2 (UNITS UNSPECIFIED), 1 COURSE, DURING THRID TRIMESTER AT 39 WEEKS FOR {1 WEEK
     Route: 042

REACTIONS (2)
  - No adverse event [Unknown]
  - Exposure during pregnancy [Unknown]
